FAERS Safety Report 5213049-6 (Version None)
Quarter: 2007Q1

REPORT INFORMATION
  Report Type: 
  Country: None (occurrence: None)
  Receive Date: 20070119
  Receipt Date: 20070108
  Transmission Date: 20070707
  Serious: Yes (Hospitalization, Other)
  Sender: FDA-Public Use
  Company Number: FRWYE068808JAN07

PATIENT
  Age: 50 Year
  Sex: Female

DRUGS (2)
  1. ENBREL [Suspect]
     Indication: POLYMYALGIA RHEUMATICA
     Dosage: UNKNOWN
     Route: 058
  2. REMICADE [Suspect]
     Indication: POLYMYALGIA RHEUMATICA
     Dosage: 4 MG/KG, FREQUENCY UNSPEC.
     Route: 042

REACTIONS (6)
  - ANTINUCLEAR ANTIBODY POSITIVE [None]
  - CARDIAC TAMPONADE [None]
  - DNA ANTIBODY POSITIVE [None]
  - LUPUS-LIKE SYNDROME [None]
  - PERICARDITIS [None]
  - POLYARTHRITIS [None]
